FAERS Safety Report 6306712-7 (Version None)
Quarter: 2009Q3

REPORT INFORMATION
  Report Type: 
  Country: None (occurrence: None)
  Receive Date: 20090812
  Receipt Date: 20090522
  Transmission Date: 20100115
  Serious: No
  Sender: FDA-Public Use
  Company Number: A0785870A

PATIENT
  Sex: Male

DRUGS (2)
  1. VERAMYST [Suspect]
     Indication: ILL-DEFINED DISORDER
     Route: 045
     Dates: start: 20090501, end: 20090501
  2. NO CONCURRENT MEDICATION [Concomitant]

REACTIONS (2)
  - EYE IRRITATION [None]
  - VISION BLURRED [None]
